FAERS Safety Report 25794597 (Version 1)
Quarter: 2025Q3

REPORT INFORMATION
  Report Type: Spontaneous
  Country: GB (occurrence: GB)
  Receive Date: 20250912
  Receipt Date: 20250912
  Transmission Date: 20251020
  Serious: Yes (Other)
  Sender: DR REDDYS
  Company Number: None

PATIENT
  Age: 58 Year
  Sex: Female
  Weight: 97 kg

DRUGS (3)
  1. MONTELUKAST [Suspect]
     Active Substance: MONTELUKAST
     Indication: Product used for unknown indication
     Dosage: ONE TO BE TAKEN AT NIGHT
     Dates: end: 20250514
  2. OMEPRAZOLE [Concomitant]
     Active Substance: OMEPRAZOLE
     Indication: Product used for unknown indication
     Dosage: ONE TO BE TAKEN EACH DAY (FIRST THING IN THE MORNING)
     Dates: start: 20250311
  3. Sodium alginate / Potassium bicarbonate [Concomitant]
     Indication: Product used for unknown indication
     Dates: start: 20250311, end: 20250426

REACTIONS (2)
  - Muscle spasms [Unknown]
  - Dysphemia [Unknown]

NARRATIVE: CASE EVENT DATE: 20250503
